FAERS Safety Report 10081977 (Version 1)
Quarter: 2014Q2

REPORT INFORMATION
  Report Type: Report from Study
  Country: US (occurrence: US)
  Receive Date: 20140416
  Receipt Date: 20140416
  Transmission Date: 20141212
  Serious: Yes (Disabling)
  Sender: FDA-Public Use
  Company Number: US-SA-2014SA041468

PATIENT
  Age: 52 Year
  Sex: Female

DRUGS (2)
  1. LANTUS [Suspect]
     Indication: DIABETES MELLITUS
     Dosage: DOSE:20 UNIT(S)
     Route: 058
     Dates: start: 20140130
  2. HUMALOG [Concomitant]

REACTIONS (4)
  - Disability [Unknown]
  - Oedema peripheral [Recovering/Resolving]
  - Oedema [Unknown]
  - Drug dose omission [Unknown]
